FAERS Safety Report 14753624 (Version 1)
Quarter: 2018Q2

REPORT INFORMATION
  Report Type: Spontaneous
  Country: US (occurrence: US)
  Receive Date: 20180406
  Receipt Date: 20180406
  Transmission Date: 20180711
  Serious: Yes (Other)
  Sender: FDA-Public Use
  Company Number: None

PATIENT
  Age: 51 Year
  Sex: Female

DRUGS (6)
  1. MUPIROCIN. [Concomitant]
     Active Substance: MUPIROCIN
  2. DIPHENHYDRAMINE. [Suspect]
     Active Substance: DIPHENHYDRAMINE
     Indication: PREMEDICATION
     Route: 040
  3. CEFTAZIDIME. [Concomitant]
     Active Substance: CEFTAZIDIME
  4. LIDOBENALOX, [Concomitant]
  5. INSULIN LISPRO [Concomitant]
     Active Substance: INSULIN LISPRO
  6. INSULIN GLARGINE [Concomitant]
     Active Substance: INSULIN GLARGINE

REACTIONS (8)
  - Hyperhidrosis [None]
  - Heart rate increased [None]
  - Hypotension [None]
  - Dizziness [None]
  - Cough [None]
  - Cardio-respiratory arrest [None]
  - Neutropenia [None]
  - Dyspnoea [None]

NARRATIVE: CASE EVENT DATE: 20180123
